FAERS Safety Report 9849488 (Version 3)
Quarter: 2014Q1

REPORT INFORMATION
  Report Type: Spontaneous
  Country: GB (occurrence: GB)
  Receive Date: 20140128
  Receipt Date: 20140311
  Transmission Date: 20141002
  Serious: Yes (Death, Hospitalization, Other)
  Sender: FDA-Public Use
  Company Number: PHFR2013GB006492

PATIENT
  Age: 50 Year
  Sex: Female

DRUGS (2)
  1. CLOZARIL [Suspect]
     Indication: SCHIZOPHRENIA
     Dosage: UNK
     Route: 048
     Dates: start: 20030527
  2. CLOZARIL [Suspect]
     Dosage: UNK
     Route: 048
     Dates: start: 20131111

REACTIONS (4)
  - Pancreatic carcinoma [Fatal]
  - Metastases to liver [Fatal]
  - White blood cell count increased [Not Recovered/Not Resolved]
  - Neutrophil count increased [Unknown]
